FAERS Safety Report 4489096-9 (Version None)
Quarter: 2004Q4

REPORT INFORMATION
  Report Type: 
  Country: None (occurrence: None)
  Receive Date: 20041029
  Receipt Date: 20041018
  Transmission Date: 20050328
  Serious: Yes (Death, Life-Threatening, Hospitalization)
  Sender: FDA-Public Use
  Company Number: PL-ROCHE-383789

PATIENT
  Age: 57 Year
  Sex: Male
  Weight: 85 kg

DRUGS (5)
  1. CYMEVENE [Suspect]
     Route: 042
     Dates: start: 20041015, end: 20041015
  2. PROGRAF [Concomitant]
     Indication: TRANSPLANT REJECTION
     Route: 048
     Dates: start: 20030409, end: 20041019
  3. AZATHIOPRINE [Concomitant]
     Indication: TRANSPLANT REJECTION
     Route: 048
     Dates: start: 20030409, end: 20041015
  4. SOLU-MEDROL [Concomitant]
     Indication: TRANSPLANT REJECTION
     Route: 042
     Dates: start: 20041013, end: 20041019
  5. CELLCEPT [Concomitant]
     Dosage: DISCONTINUED 1 OR 2 DAYS BEFORE RECEIVING GANCICLOVIR
     Dates: end: 20041015

REACTIONS (7)
  - CARDIO-RESPIRATORY ARREST [None]
  - CATHETER RELATED COMPLICATION [None]
  - DIALYSIS [None]
  - DRUG TOXICITY [None]
  - GENERAL PHYSICAL HEALTH DETERIORATION [None]
  - LACTIC ACIDOSIS [None]
  - PANCYTOPENIA [None]
